FAERS Safety Report 7946332-1 (Version None)
Quarter: 2011Q4

REPORT INFORMATION
  Report Type: 
  Country: None (occurrence: None)
  Receive Date: 20111129
  Receipt Date: 20111117
  Transmission Date: 20120403
  Serious: Yes (Hospitalization)
  Sender: FDA-Public Use
  Company Number: DE-ACTELION-A-CH2011-56990

PATIENT
  Sex: Female
  Weight: 58 kg

DRUGS (3)
  1. NIFEDIPINE [Concomitant]
  2. ENALAPRIL MALEATE [Concomitant]
  3. TRACLEER [Suspect]
     Indication: SKIN ULCER
     Dosage: 62.5 MG, BID
     Route: 048
     Dates: start: 20101227, end: 20110328

REACTIONS (7)
  - GAMMA-GLUTAMYLTRANSFERASE INCREASED [None]
  - CHOLECYSTECTOMY [None]
  - LIVER FUNCTION TEST ABNORMAL [None]
  - CHOLECYSTITIS [None]
  - CHOLELITHIASIS [None]
  - ASPARTATE AMINOTRANSFERASE INCREASED [None]
  - ALANINE AMINOTRANSFERASE INCREASED [None]
